FAERS Safety Report 7297223-3 (Version None)
Quarter: 2011Q1

REPORT INFORMATION
  Report Type: 
  Country: None (occurrence: None)
  Receive Date: 20110216
  Receipt Date: 20110207
  Transmission Date: 20110831
  Serious: Yes (Hospitalization)
  Sender: FDA-Public Use
  Company Number: A0903417C

PATIENT
  Sex: Female
  Weight: 53 kg

DRUGS (5)
  1. OFATUMUMAB [Suspect]
     Indication: DIFFUSE LARGE B-CELL LYMPHOMA RECURRENT
     Route: 042
     Dates: start: 20101221
  2. CISPLATIN [Suspect]
     Indication: DIFFUSE LARGE B-CELL LYMPHOMA RECURRENT
     Dosage: 100MGM2 EVERY 3 WEEKS
     Route: 042
     Dates: start: 20101221
  3. CYTARABINE [Suspect]
     Indication: DIFFUSE LARGE B-CELL LYMPHOMA RECURRENT
     Dosage: 4GM2 EVERY 3 WEEKS
     Route: 042
     Dates: start: 20101221
  4. SOMAC [Concomitant]
     Indication: PROPHYLAXIS
     Dosage: 40MG PER DAY
     Route: 048
     Dates: start: 20101221
  5. DEXAMETHASONE [Suspect]
     Indication: DIFFUSE LARGE B-CELL LYMPHOMA RECURRENT
     Dosage: 40MG EVERY 3 WEEKS
     Route: 048
     Dates: start: 20101221

REACTIONS (1)
  - FEBRILE NEUTROPENIA [None]
